FAERS Safety Report 23097454 (Version 1)
Quarter: 2023Q4

REPORT INFORMATION
  Report Type: Spontaneous
  Country: US (occurrence: US)
  Receive Date: 20231023
  Receipt Date: 20231023
  Transmission Date: 20240110
  Serious: Yes (Hospitalization, Other)
  Sender: FDA-Public Use
  Company Number: US-BIOVITRUM-2023-US-016873

PATIENT
  Age: 12 Month
  Sex: Female

DRUGS (1)
  1. SYNAGIS [Suspect]
     Active Substance: PALIVIZUMAB
     Indication: Hypoplastic left heart syndrome
     Dosage: 120MG EVERY 28DAYS-30DAYS
     Route: 030
     Dates: start: 20231014

REACTIONS (2)
  - Respiratory syncytial virus bronchiolitis [Unknown]
  - Bronchiolitis [Unknown]
